FAERS Safety Report 11409635 (Version 1)
Quarter: 2015Q3

REPORT INFORMATION
  Report Type: Spontaneous
  Country: US (occurrence: None)
  Receive Date: 20150820
  Receipt Date: 20150820
  Transmission Date: 20151125
  Serious: No
  Sender: FDA-Public Use
  Company Number: None

PATIENT
  Age: 44 Year
  Sex: Female
  Weight: 70.31 kg

DRUGS (1)
  1. TESSALON [Suspect]
     Active Substance: BENZONATATE
     Indication: HYPERSENSITIVITY
     Dosage: 3, THREE TIMES DAILY, TAKEN BY MOUTH
     Route: 048
     Dates: start: 20150819, end: 20150819

REACTIONS (5)
  - Heart rate increased [None]
  - Product physical issue [None]
  - Pharyngeal hypoaesthesia [None]
  - Hypoaesthesia oral [None]
  - Dizziness [None]

NARRATIVE: CASE EVENT DATE: 20150819
